FAERS Safety Report 8169136-6 (Version None)
Quarter: 2012Q1

REPORT INFORMATION
  Report Type: 
  Country: None (occurrence: None)
  Receive Date: 20120227
  Receipt Date: 20120220
  Transmission Date: 20120608
  Serious: Yes (Hospitalization, Other)
  Sender: FDA-Public Use
  Company Number: AU-ROCHE-1034616

PATIENT
  Sex: Male
  Weight: 75 kg

DRUGS (3)
  1. METHOTREXATE [Concomitant]
  2. ACTEMRA [Suspect]
     Indication: RHEUMATOID ARTHRITIS
     Dosage: DOSE: 8 MG/KG
     Route: 042
     Dates: start: 20100101
  3. PREDNISONE [Concomitant]

REACTIONS (3)
  - HIP FRACTURE [None]
  - ARTHRALGIA [None]
  - LOWER RESPIRATORY TRACT INFECTION [None]
